FAERS Safety Report 20675110 (Version 1)
Quarter: 2022Q2

REPORT INFORMATION
  Report Type: Spontaneous
  Country: US (occurrence: US)
  Receive Date: 20220405
  Receipt Date: 20220405
  Transmission Date: 20220721
  Serious: No
  Sender: FDA-Public Use
  Company Number: US-PFIZER INC-202101175782

PATIENT
  Sex: Female

DRUGS (3)
  1. IBRANCE [Suspect]
     Active Substance: PALBOCICLIB
     Indication: Breast cancer female
     Dosage: 75 MG, CYCLIC (1 QD FOR 21DAYS Q 28 DAYS)
  2. FASLODEX [Concomitant]
     Active Substance: FULVESTRANT
     Dosage: UNK
  3. CAPECITABINE [Concomitant]
     Active Substance: CAPECITABINE
     Dosage: UNK

REACTIONS (1)
  - Neoplasm progression [Not Recovered/Not Resolved]

NARRATIVE: CASE EVENT DATE: 20210401
